FAERS Safety Report 13630877 (Version 2)
Quarter: 2017Q3

REPORT INFORMATION
  Report Type: Spontaneous
  Country: US (occurrence: US)
  Receive Date: 20170608
  Receipt Date: 20170711
  Transmission Date: 20171127
  Serious: No
  Sender: FDA-Public Use
  Company Number: US-BAYER-2017-105480

PATIENT
  Age: 28 Year
  Sex: Female
  Weight: 70.7 kg

DRUGS (2)
  1. MIRENA [Suspect]
     Active Substance: LEVONORGESTREL
     Indication: CONTRACEPTION
     Dosage: 20 MCG/24HR, CONT
     Route: 015
     Dates: start: 20170525, end: 20170531
  2. CYTOTEC [Concomitant]
     Active Substance: MISOPROSTOL
     Dosage: UNK
     Route: 067
     Dates: start: 20170531

REACTIONS (3)
  - Medical device discomfort [None]
  - Device expulsion [None]
  - Bladder discomfort [None]

NARRATIVE: CASE EVENT DATE: 201705
